FAERS Safety Report 5165638-5 (Version None)
Quarter: 2006Q4

REPORT INFORMATION
  Report Type: 
  Country: None (occurrence: None)
  Receive Date: 20061124
  Receipt Date: 20061115
  Transmission Date: 20070319
  Serious: Yes (Other)
  Sender: FDA-Public Use
  Company Number: 2006142010

PATIENT
  Age: 14 Year
  Sex: Female

DRUGS (1)
  1. SUDAFED (PSEUDOEPHEDRINE) [Suspect]
     Indication: ANGER
     Dosage: MORE THAN 5 TABLETS ONCE, ORAL
     Route: 048
     Dates: start: 20061115, end: 20061115

REACTIONS (2)
  - INTENTIONAL OVERDOSE [None]
  - VASOCONSTRICTION [None]
